FAERS Safety Report 9214039 (Version 1)
Quarter: 2013Q2

REPORT INFORMATION
  Report Type: Spontaneous
  Country: US (occurrence: US)
  Receive Date: 20130405
  Receipt Date: 20130405
  Transmission Date: 20140414
  Serious: No
  Sender: FDA-Public Use
  Company Number: US-PFIZER INC-2013104283

PATIENT
  Age: 59 Year
  Sex: Male

DRUGS (4)
  1. SERTRALINE HCL [Suspect]
     Indication: DEPRESSION
     Dosage: 50 MG, UNK
  2. PAROXETINE HYDROCHLORIDE [Suspect]
  3. BUSPIRONE [Suspect]
     Indication: DEPRESSION
     Dosage: 15 MG, UNK
  4. WELLBUTRIN [Suspect]
     Indication: DEPRESSION
     Dosage: UNK

REACTIONS (1)
  - Drug hypersensitivity [Unknown]
